FAERS Safety Report 16469413 (Version 1)
Quarter: 2019Q2

REPORT INFORMATION
  Report Type: Spontaneous
  Country: US (occurrence: US)
  Receive Date: 20190624
  Receipt Date: 20190624
  Transmission Date: 20190711
  Serious: Yes (Hospitalization)
  Sender: FDA-Public Use
  Company Number: US-SA-2019SA163756

PATIENT
  Age: 74 Year
  Sex: Female

DRUGS (2)
  1. HUMALOG [Concomitant]
     Active Substance: INSULIN LISPRO
     Dosage: 12 U, TID
     Route: 065
  2. LANTUS SOLOSTAR [Suspect]
     Active Substance: INSULIN GLARGINE
     Indication: TYPE 2 DIABETES MELLITUS
     Dosage: 20 U, QD
     Route: 065

REACTIONS (4)
  - Blood glucose increased [Unknown]
  - Chronic obstructive pulmonary disease [Unknown]
  - Device malfunction [Unknown]
  - Dyspnoea [Unknown]
